FAERS Safety Report 6046279-4 (Version None)
Quarter: 2009Q1

REPORT INFORMATION
  Report Type: 
  Country: None (occurrence: None)
  Receive Date: 20090121
  Receipt Date: 20090121
  Transmission Date: 20090719
  Serious: Yes (Other)
  Sender: FDA-Public Use
  Company Number: None

PATIENT
  Age: 13 Year
  Sex: Male
  Weight: 79.8331 kg

DRUGS (1)
  1. SINGULAIR [Suspect]
     Indication: MULTIPLE ALLERGIES
     Dosage: 1 1 AT NIGHT PO
     Route: 048
     Dates: start: 20081202, end: 20090112

REACTIONS (30)
  - ABDOMINAL PAIN UPPER [None]
  - ABNORMAL BEHAVIOUR [None]
  - AGGRESSION [None]
  - AGITATION [None]
  - ANGER [None]
  - CHOKING [None]
  - CHOKING SENSATION [None]
  - CRYING [None]
  - DECREASED APPETITE [None]
  - DISTURBANCE IN ATTENTION [None]
  - DIZZINESS [None]
  - DYSPEPSIA [None]
  - DYSPNOEA [None]
  - EMOTIONAL DISORDER [None]
  - FEELING ABNORMAL [None]
  - GASTRIC PH DECREASED [None]
  - HEADACHE [None]
  - HYPERHIDROSIS [None]
  - HYPOAESTHESIA [None]
  - HYPOPHAGIA [None]
  - IRRITABILITY [None]
  - MOOD ALTERED [None]
  - MORBID THOUGHTS [None]
  - MYALGIA [None]
  - OBSESSIVE THOUGHTS [None]
  - PANIC ATTACK [None]
  - PRESYNCOPE [None]
  - SENSORY DISTURBANCE [None]
  - TREMOR [None]
  - VIOLENCE-RELATED SYMPTOM [None]
